FAERS Safety Report 21233037 (Version 1)
Quarter: 2022Q3

REPORT INFORMATION
  Report Type: Report from Study
  Country: CA (occurrence: CA)
  Receive Date: 20220819
  Receipt Date: 20220819
  Transmission Date: 20221026
  Serious: Yes (Other)
  Sender: FDA-Public Use
  Company Number: CA-MYLANLABS-2022M1046669

PATIENT
  Age: 48 Year
  Sex: Male

DRUGS (1)
  1. HULIO [Suspect]
     Active Substance: ADALIMUMAB-FKJP
     Indication: Product used for unknown indication
     Dosage: 40 MILLIGRAM, Q2W (EVERY OTHER WEEK)
     Route: 065

REACTIONS (5)
  - Rectal haemorrhage [Unknown]
  - Deafness unilateral [Unknown]
  - Ear swelling [Unknown]
  - Ear pain [Unknown]
  - Otorrhoea [Unknown]
